FAERS Safety Report 5722583-1 (Version None)
Quarter: 2008Q2

REPORT INFORMATION
  Report Type: 
  Country: None (occurrence: None)
  Receive Date: 20080429
  Receipt Date: 20070912
  Transmission Date: 20081010
  Serious: No
  Sender: FDA-Public Use
  Company Number: US-ASTRAZENECA-2007UW21558

PATIENT
  Age: 65 Year
  Sex: Female
  Weight: 89.8 kg

DRUGS (10)
  1. NEXIUM [Suspect]
     Indication: OESOPHAGEAL ULCER
     Route: 048
     Dates: start: 20070701
  2. SYNTHROID [Concomitant]
  3. ZYRTEC [Concomitant]
  4. PREMARIN [Concomitant]
  5. ASPIRIN [Concomitant]
  6. FISH OIL [Concomitant]
  7. SLOW-MAG [Concomitant]
     Dosage: 3 TABLETS
  8. MELATONIN [Concomitant]
  9. M.V.I. [Concomitant]
  10. CALCIUM [Concomitant]

REACTIONS (1)
  - TONGUE DISCOLOURATION [None]
